FAERS Safety Report 9281846 (Version 2)
Quarter: 2013Q3

REPORT INFORMATION
  Report Type: Spontaneous
  Country: CA (occurrence: CA)
  Receive Date: 20130510
  Receipt Date: 20130702
  Transmission Date: 20140515
  Serious: Yes (Other)
  Sender: FDA-Public Use
  Company Number: CA-ROCHE-1222471

PATIENT
  Age: 53 Year
  Sex: Female

DRUGS (4)
  1. XOLAIR [Suspect]
     Indication: ASTHMA
     Route: 058
     Dates: start: 20051115
  2. XOLAIR [Suspect]
     Route: 058
     Dates: start: 20090421
  3. XOLAIR [Suspect]
     Route: 065
     Dates: start: 20130430
  4. XOLAIR [Suspect]
     Route: 065
     Dates: start: 20130625

REACTIONS (4)
  - Heart rate increased [Recovered/Resolved]
  - Blood pressure systolic increased [Unknown]
  - Sneezing [Recovering/Resolving]
  - Cough [Recovering/Resolving]
